FAERS Safety Report 6339438-4 (Version None)
Quarter: 2009Q3

REPORT INFORMATION
  Report Type: 
  Country: None (occurrence: None)
  Receive Date: 20090903
  Receipt Date: 20090825
  Transmission Date: 20100115
  Serious: Yes (Hospitalization, Other)
  Sender: FDA-Public Use
  Company Number: US-ELI_LILLY_AND_COMPANY-US200908005593

PATIENT
  Sex: Male

DRUGS (14)
  1. HUMALOG [Suspect]
     Route: 058
  2. HUMALOG [Suspect]
     Route: 058
  3. HUMALOG [Suspect]
     Route: 058
  4. DIOVAN [Concomitant]
  5. LIPITOR [Concomitant]
     Dosage: 80 MG, UNK
  6. OMEPRAZOLE [Concomitant]
     Dosage: 20 MG, UNK
  7. CARVEDILOL [Concomitant]
  8. PLAVIX [Concomitant]
     Dosage: 75 MG, UNK
  9. ASPIRIN [Concomitant]
     Dosage: 81 MG, UNK
  10. LOVAZA [Concomitant]
     Dosage: 2000 MG, UNK
  11. FLOMAX [Concomitant]
  12. MULTI-VITAMIN [Concomitant]
  13. VITAMIN E [Concomitant]
  14. ASCORBIC ACID [Concomitant]

REACTIONS (4)
  - ATRIAL FIBRILLATION [None]
  - BLOOD GLUCOSE INCREASED [None]
  - DRUG DOSE OMISSION [None]
  - MYOCARDIAL INFARCTION [None]
